FAERS Safety Report 9640059 (Version 1)
Quarter: 2013Q4

REPORT INFORMATION
  Report Type: Spontaneous
  Country: US (occurrence: None)
  Receive Date: 20131022
  Receipt Date: 20131022
  Transmission Date: 20140711
  Serious: Yes (Other)
  Sender: FDA-Public Use
  Company Number: None

PATIENT
  Age: 40 Year
  Sex: Male
  Weight: 101.15 kg

DRUGS (4)
  1. ETANERCEPT [Suspect]
     Dosage: 50MG X1 SQ RIGHT UPPER OUTER ARM
     Route: 058
     Dates: start: 20130411
  2. ETANERCEPT [Suspect]
     Indication: ANKYLOSING SPONDYLITIS
     Dosage: 50MG X1 SQ RIGHT UPPER OUTER ARM
     Route: 058
     Dates: start: 20130411
  3. PNEUMO-POLYSACCHARIDE [Suspect]
     Dosage: X1 IM RIGHT DELTOID
     Route: 030
     Dates: start: 20130411
  4. PNEUMO-POLYSACCHARIDE [Suspect]
     Indication: ANKYLOSING SPONDYLITIS
     Dosage: X1 IM RIGHT DELTOID
     Route: 030
     Dates: start: 20130411

REACTIONS (2)
  - Hypoaesthesia [None]
  - Paralysis [None]
